FAERS Safety Report 6017467-8 (Version None)
Quarter: 2008Q4

REPORT INFORMATION
  Report Type: 
  Country: None (occurrence: None)
  Receive Date: 20081223
  Receipt Date: 20081215
  Transmission Date: 20090506
  Serious: Yes (Other)
  Sender: FDA-Public Use
  Company Number: FR-ABBOTT-08P-056-0493058-00

PATIENT
  Sex: Female

DRUGS (3)
  1. NORVIR [Suspect]
     Indication: HIV INFECTION
     Route: 048
     Dates: start: 20081017, end: 20081027
  2. ABACAVIR SULFATE/LAMIVUDINE [Suspect]
     Indication: HIV INFECTION
     Dosage: FORM STRENGH 600/300 MILLIGRAM
     Route: 048
  3. ATAZANAVIR [Suspect]
     Indication: HIV INFECTION
     Route: 048
     Dates: start: 20081017, end: 20081027

REACTIONS (8)
  - ANGIOEDEMA [None]
  - BLISTER [None]
  - DRUG ERUPTION [None]
  - EYELID OEDEMA [None]
  - LIP OEDEMA [None]
  - PRURITUS [None]
  - PYREXIA [None]
  - URTICARIA [None]
